FAERS Safety Report 11030255 (Version 2)
Quarter: 2018Q1

REPORT INFORMATION
  Report Type: Report from Study
  Country: JP (occurrence: JP)
  Receive Date: 20150415
  Receipt Date: 20180224
  Transmission Date: 20180508
  Serious: Yes (Hospitalization)
  Sender: FDA-Public Use
  Company Number: JP-ROCHE-1563714

PATIENT
  Age: 82 Year
  Sex: Male
  Weight: 47 kg

DRUGS (24)
  1. GASTER [Concomitant]
     Active Substance: FAMOTIDINE
     Indication: GASTRITIS PROPHYLAXIS
     Dosage: DOSAGE IS UNCERTAIN.
     Route: 048
     Dates: start: 20110509
  2. PLAVIX [Concomitant]
     Active Substance: CLOPIDOGREL BISULFATE
     Indication: MYOCARDIAL ISCHAEMIA
     Dosage: DOSAGE IS UNCERTAIN.
     Route: 048
     Dates: start: 20101108
  3. HIRUDOID CREAM [Concomitant]
     Dosage: DOSAGE IS UNCERTAIN.
     Route: 065
  4. METHOXY POLYETHYLENE GLYCOL-EPOETIN BETA. [Suspect]
     Active Substance: METHOXY POLYETHYLENE GLYCOL-EPOETIN BETA
     Route: 042
     Dates: start: 20150116
  5. THYRADIN-S [Concomitant]
     Active Substance: LEVOTHYROXINE
     Indication: HYPOTHYROIDISM
     Dosage: DOSAGE IS UNCERTAIN.
     Route: 048
     Dates: start: 20120521
  6. BAYASPIRIN [Concomitant]
     Active Substance: ASPIRIN
     Indication: MYOCARDIAL ISCHAEMIA
     Dosage: DOSAGE IS UNCERTAIN.
     Route: 048
     Dates: start: 20101108
  7. CRAVIT [Concomitant]
     Active Substance: LEVOFLOXACIN
     Dosage: DOSAGE IS UNCERTAIN.
     Route: 047
  8. RISUMIC [Concomitant]
     Active Substance: AMEZINIUM METILSULFATE
     Indication: PROCEDURAL HYPOTENSION
     Dosage: DOSAGE IS UNCERTAIN.
     Route: 048
     Dates: start: 20091012
  9. ACARDI [Concomitant]
     Indication: CARDIAC FAILURE
     Dosage: DOSAGE IS UNCERTAIN.
     Route: 048
     Dates: start: 20131028
  10. FESIN (JAPAN) [Concomitant]
     Active Substance: IRON SUCROSE
     Dosage: DOSAGE IS UNCERTAIN.
     Route: 065
  11. SIGMART [Concomitant]
     Active Substance: NICORANDIL
     Indication: MYOCARDIAL ISCHAEMIA
     Dosage: DOSAGE IS UNCERTAIN.
     Route: 048
     Dates: start: 20111107
  12. MUCOSOLVAN [Concomitant]
     Active Substance: AMBROXOL HYDROCHLORIDE
     Dosage: DOSAGE IS UNCERTAIN.
     Route: 065
  13. ARGAMATE [Concomitant]
     Active Substance: CALCIUM POLYSTYRENE SULFONATE
     Indication: HYPERKALAEMIA
     Dosage: DOSAGE IS UNCERTAIN.
     Route: 048
     Dates: start: 20090316
  14. GLYCERIN. [Concomitant]
     Active Substance: GLYCERIN
     Dosage: DOSAGE IS UNCERTAIN.
     Route: 054
  15. GENTACIN [Concomitant]
     Active Substance: GENTAMICIN SULFATE
     Dosage: DOSAGE IS UNCERTAIN.
     Route: 003
  16. ISODINE [Concomitant]
     Active Substance: POVIDONE-IODINE
     Dosage: DOSAGE IS UNCERTAIN.
     Route: 065
  17. METHOXY POLYETHYLENE GLYCOL-EPOETIN BETA. [Suspect]
     Active Substance: METHOXY POLYETHYLENE GLYCOL-EPOETIN BETA
     Indication: NEPHROGENIC ANAEMIA
     Route: 042
     Dates: start: 20130812
  18. ANCARON [Concomitant]
     Active Substance: AMIODARONE HYDROCHLORIDE
     Indication: ATRIAL FIBRILLATION
     Dosage: DOSAGE IS UNCERTAIN.
     Route: 048
     Dates: start: 20110819
  19. DOPS (JAPAN) [Concomitant]
     Indication: PROCEDURAL HYPOTENSION
     Dosage: AT DIALYSIS
     Route: 048
     Dates: start: 20091012
  20. MS ONSHIPPU [Concomitant]
     Active Substance: CAMPHOR\CAPSICUM\METHYL SALICYLATE
     Dosage: DOSAGE IS UNCERTAIN.
     Route: 062
  21. VOLTAREN [Concomitant]
     Active Substance: DICLOFENAC SODIUM
     Dosage: DOSAGE IS UNCERTAIN.
     Route: 065
  22. PURSENNID [Concomitant]
     Active Substance: SENNOSIDES A AND B
     Dosage: DOSAGE IS UNCERTAIN.
     Route: 065
  23. MOHRUS TAPE L [Concomitant]
     Active Substance: KETOPROFEN
     Dosage: DOSAGE IS UNCERTAIN.
     Route: 061
  24. NESP [Concomitant]
     Active Substance: DARBEPOETIN ALFA
     Route: 065

REACTIONS (3)
  - Acute myocardial infarction [Recovering/Resolving]
  - Myocardial ischaemia [Recovered/Resolved]
  - Atrial fibrillation [Recovered/Resolved]

NARRATIVE: CASE EVENT DATE: 20130916
